FAERS Safety Report 4363394-1 (Version None)
Quarter: 2004Q2

REPORT INFORMATION
  Report Type: 
  Country: None (occurrence: None)
  Receive Date: 20040524
  Receipt Date: 20040514
  Transmission Date: 20050107
  Serious: Yes (Hospitalization)
  Sender: FDA-Public Use
  Company Number: 79

PATIENT
  Age: 63 Year
  Sex: Female

DRUGS (15)
  1. MELPHALAN [Suspect]
     Indication: MULTIPLE MYELOMA
     Dosage: 350MG PER DAY
     Route: 042
     Dates: start: 20040201, end: 20040201
  2. THALIDOMIDE [Suspect]
     Indication: MULTIPLE MYELOMA
     Dosage: 50MG PER DAY
     Route: 048
     Dates: start: 20031111, end: 20040324
  3. VIOXX [Concomitant]
     Dosage: 50MG PER DAY
     Route: 048
  4. OXYCONTIN [Concomitant]
     Dosage: 20MG TWICE PER DAY
     Route: 048
  5. SENNA [Concomitant]
     Indication: CONSTIPATION
     Dosage: 17.2MG UNKNOWN
     Route: 048
  6. ZOLPIDEM [Concomitant]
     Indication: SLEEP DISORDER
     Dosage: 5MG AS REQUIRED
     Route: 048
  7. ACYCLOVIR [Concomitant]
     Indication: VIRAL INFECTION
     Dosage: 400MG TWICE PER DAY
     Route: 048
  8. FLEXERIL [Concomitant]
     Dosage: 10MG PER DAY
     Route: 048
  9. VENLAFAXINE [Concomitant]
     Indication: DEPRESSION
     Dosage: 37.5MG PER DAY
     Route: 048
  10. SYNTHROID [Concomitant]
     Indication: HYPOTHYROIDISM
     Dosage: 112MCG PER DAY
     Route: 048
  11. LOVENOX [Concomitant]
     Indication: ANTICOAGULANT THERAPY
     Dosage: 100MG PER DAY
     Route: 058
  12. ARANESP [Concomitant]
     Dosage: 200MCG EVERY TWO WEEKS
     Route: 058
  13. MULTI-VITAMIN [Concomitant]
     Dosage: 1TAB PER DAY
     Route: 048
  14. HEPARIN [Concomitant]
     Indication: ANTICOAGULANT THERAPY
     Dosage: 100UNIT PER DAY
     Route: 042
  15. PANTOPRAZOLE [Concomitant]
     Dosage: 40MG PER DAY
     Route: 048

REACTIONS (4)
  - FEMORAL NECK FRACTURE [None]
  - HIP ARTHROPLASTY [None]
  - LUNG INFILTRATION [None]
  - PNEUMONIA [None]
